FAERS Safety Report 5246433-5 (Version None)
Quarter: 2007Q1

REPORT INFORMATION
  Report Type: 
  Country: None (occurrence: None)
  Receive Date: 20070222
  Receipt Date: 20070222
  Transmission Date: 20070707
  Serious: Yes (Life-Threatening, Hospitalization)
  Sender: FDA-Public Use
  Company Number: None

PATIENT
  Age: 70 Year
  Sex: Female
  Weight: 52.6173 kg

DRUGS (1)
  1. LENALIDOMIDE 25 MG CELGENE [Suspect]
     Indication: MULTIPLE MYELOMA
     Dosage: 25 MG  DAILY  PO
     Route: 048
     Dates: start: 20070101, end: 20070103

REACTIONS (5)
  - ANAEMIA [None]
  - HAEMODIALYSIS [None]
  - RENAL DISORDER [None]
  - RENAL FAILURE ACUTE [None]
  - THROMBOCYTOPENIA [None]
